FAERS Safety Report 7433394-3 (Version None)
Quarter: 2011Q2

REPORT INFORMATION
  Report Type: 
  Country: None (occurrence: None)
  Receive Date: 20110422
  Receipt Date: 20110414
  Transmission Date: 20111010
  Serious: Yes (Death, Other)
  Sender: FDA-Public Use
  Company Number: GB-GENZYME-CLOF-1001526

PATIENT
  Sex: Female
  Weight: 61 kg

DRUGS (17)
  1. EVOLTRA [Suspect]
     Indication: ACUTE MYELOID LEUKAEMIA
     Dosage: UNK
     Route: 065
     Dates: start: 20100616, end: 20100701
  2. CYTARABINE [Suspect]
     Indication: ACUTE MYELOID LEUKAEMIA
     Dosage: UNK
     Route: 065
     Dates: start: 20100616, end: 20100701
  3. CYCLOSPORINE [Suspect]
     Indication: IMMUNOSUPPRESSANT DRUG THERAPY
     Dosage: 152 MG, QD
     Route: 042
     Dates: start: 20110206, end: 20110215
  4. EVOLTRA [Suspect]
     Dosage: UNK
     Route: 065
     Dates: start: 20100831, end: 20100101
  5. IDARUBICIN HCL [Suspect]
     Indication: ACUTE MYELOID LEUKAEMIA
     Dosage: UNK
     Route: 065
     Dates: start: 20101001, end: 20100101
  6. MESNA [Suspect]
     Indication: IMMUNOSUPPRESSANT DRUG THERAPY
     Dosage: 3660 MG, BID
     Route: 042
     Dates: start: 20110203, end: 20110204
  7. CYCLOPHOSPHAMIDE [Suspect]
     Indication: IMMUNOSUPPRESSANT DRUG THERAPY
     Dosage: 3660 MG, QD
     Route: 042
     Dates: start: 20110203, end: 20110204
  8. CYTARABINE [Suspect]
     Indication: ACUTE MYELOID LEUKAEMIA
     Dosage: UNK
     Route: 065
     Dates: start: 20101001, end: 20100101
  9. AMSACRINE [Suspect]
     Indication: IMMUNOSUPPRESSANT DRUG THERAPY
     Dosage: 160 MG, QD
     Route: 042
     Dates: start: 20110126, end: 20110129
  10. DAUNORUBICIN HCL [Suspect]
     Indication: ACUTE MYELOID LEUKAEMIA
     Dosage: UNK
     Route: 065
     Dates: start: 20100616, end: 20100701
  11. DAUNORUBICIN HCL [Suspect]
     Dosage: UNK
     Route: 065
     Dates: start: 20100831, end: 20100101
  12. ETOPOSIDE [Suspect]
     Indication: ACUTE MYELOID LEUKAEMIA
     Dosage: UNK
     Route: 065
     Dates: start: 20100616, end: 20100701
  13. CYTARABINE [Suspect]
     Indication: IMMUNOSUPPRESSANT DRUG THERAPY
     Dosage: 3200 MG, QD
     Route: 042
     Dates: start: 20110126, end: 20110129
  14. FLUDARA [Suspect]
     Indication: IMMUNOSUPPRESSANT DRUG THERAPY
     Dosage: 48 MG, QD
     Route: 042
     Dates: start: 20110126, end: 20110129
  15. THYMOGLOBULIN [Suspect]
     Indication: IMMUNOSUPPRESSANT DRUG THERAPY
     Dosage: 152 MG, QDX3
     Route: 042
     Dates: start: 20110203, end: 20110205
  16. MYLOTARG [Suspect]
     Indication: ACUTE MYELOID LEUKAEMIA
     Dosage: UNK
     Route: 065
     Dates: start: 20100616, end: 20100701
  17. MYCOPHENOLATE MEFETIL [Suspect]
     Indication: IMMUNOSUPPRESSANT DRUG THERAPY
     Dosage: 500 MG, QS
     Route: 048
     Dates: start: 20110207, end: 20110215

REACTIONS (2)
  - CARDIAC FAILURE ACUTE [None]
  - ACUTE MYELOID LEUKAEMIA RECURRENT [None]
